FAERS Safety Report 23911243 (Version 1)
Quarter: 2024Q2

REPORT INFORMATION
  Report Type: Spontaneous
  Country: DE (occurrence: DE)
  Receive Date: 20240528
  Receipt Date: 20240528
  Transmission Date: 20240716
  Serious: Yes (Other)
  Sender: FDA-Public Use
  Company Number: None

PATIENT
  Age: 24 Year
  Sex: Female
  Weight: 78 kg

DRUGS (4)
  1. TRAMADOL [Suspect]
     Active Substance: TRAMADOL\TRAMADOL HYDROCHLORIDE
     Indication: Spinal pain
     Dosage: UNK
     Route: 042
     Dates: start: 20240509, end: 20240509
  2. TRAMADOL [Suspect]
     Active Substance: TRAMADOL\TRAMADOL HYDROCHLORIDE
     Indication: Intervertebral disc protrusion
  3. METAMIZOLE [Suspect]
     Active Substance: METAMIZOLE
     Indication: Spinal pain
     Dosage: UNK
     Route: 042
     Dates: start: 20240509, end: 20240509
  4. METAMIZOLE [Suspect]
     Active Substance: METAMIZOLE
     Indication: Intervertebral disc protrusion

REACTIONS (9)
  - Shock [Recovered/Resolved]
  - Circulatory collapse [Recovered/Resolved]
  - Syncope [Recovering/Resolving]
  - Cardiovascular disorder [Recovered/Resolved]
  - Mydriasis [Recovered/Resolved]
  - Dyspnoea [Recovered/Resolved]
  - Dizziness postural [Recovering/Resolving]
  - Diarrhoea [Recovered/Resolved]
  - Hyperhidrosis [Recovered/Resolved]

NARRATIVE: CASE EVENT DATE: 20240509
